FAERS Safety Report 6427036-3 (Version None)
Quarter: 2009Q4

REPORT INFORMATION
  Report Type: 
  Country: None (occurrence: None)
  Receive Date: 20091104
  Receipt Date: 20091023
  Transmission Date: 20100525
  Serious: Yes (Hospitalization)
  Sender: FDA-Public Use
  Company Number: FR-ELI_LILLY_AND_COMPANY-FR200909004571

PATIENT
  Sex: Male
  Weight: 75 kg

DRUGS (11)
  1. CYMBALTA [Suspect]
     Indication: DEPRESSION
     Dosage: 60 MG, DAILY (1/D)
     Route: 048
     Dates: start: 20090301
  2. CYMBALTA [Suspect]
     Dosage: 90 MG, DAILY (1/D)
     Route: 048
     Dates: start: 20090814, end: 20090904
  3. CYMBALTA [Suspect]
     Dosage: 60 MG, DAILY (1/D)
     Route: 048
     Dates: start: 20090904
  4. TEGRETOL [Concomitant]
     Dosage: 200 MG, 3/D
     Route: 048
     Dates: end: 20090914
  5. OXYCONTIN [Concomitant]
     Indication: HERNIA PAIN
     Dosage: 10 MG, 2/D
     Route: 048
  6. OXYCONTIN [Concomitant]
     Dosage: 20 MG, 2/D
     Route: 048
  7. OXYNORM [Concomitant]
     Indication: HERNIA PAIN
     Dosage: 10 MG, 4/D
     Route: 048
  8. LYRICA [Concomitant]
     Indication: HERNIA PAIN
     Dosage: 300 MG, 2/D
     Route: 048
     Dates: end: 20090928
  9. XATRAL /00975302/ [Concomitant]
     Dosage: 450 MG, DAILY (1/D)
     Route: 048
  10. DAFLON [Concomitant]
     Indication: OEDEMA PERIPHERAL
     Dosage: 500 MG, 4/D
     Route: 048
     Dates: start: 20090924
  11. SOTALOL [Concomitant]
     Indication: OBSTRUCTION GASTRIC
     Dosage: 80 MG, 2/D
     Route: 048

REACTIONS (5)
  - LEUKOPENIA [None]
  - NEUTROPENIA [None]
  - PLATELET COUNT DECREASED [None]
  - PYELONEPHRITIS [None]
  - URINARY TRACT INFECTION [None]
